FAERS Safety Report 18760722 (Version 4)
Quarter: 2021Q2

REPORT INFORMATION
  Report Type: Spontaneous
  Country: US (occurrence: US)
  Receive Date: 20210119
  Receipt Date: 20210429
  Transmission Date: 20210717
  Serious: No
  Sender: FDA-Public Use
  Company Number: US-PFIZER INC-2021027232

PATIENT
  Age: 45 Year
  Sex: Female

DRUGS (7)
  1. EPINEPHRINE. [Suspect]
     Active Substance: EPINEPHRINE
     Indication: CHEST DISCOMFORT
  2. EPINEPHRINE. [Suspect]
     Active Substance: EPINEPHRINE
     Indication: HOT FLUSH
  3. BENADRYL [Concomitant]
     Active Substance: DIPHENHYDRAMINE HYDROCHLORIDE
     Dosage: UNK
     Route: 042
  4. EPINEPHRINE. [Suspect]
     Active Substance: EPINEPHRINE
     Indication: HEADACHE
  5. EPINEPHRINE. [Suspect]
     Active Substance: EPINEPHRINE
     Indication: HEART RATE INCREASED
     Dosage: 0.3 MG
     Dates: start: 20201231
  6. EPINEPHRINE. [Suspect]
     Active Substance: EPINEPHRINE
     Indication: ANAPHYLACTIC REACTION
  7. EPINEPHRINE. [Suspect]
     Active Substance: EPINEPHRINE
     Indication: BLOOD PRESSURE INCREASED
     Dosage: 0.3 MG
     Route: 030
     Dates: start: 20201231

REACTIONS (12)
  - Headache [Recovered/Resolved with Sequelae]
  - Palpitations [Recovered/Resolved with Sequelae]
  - Hyperhidrosis [Recovered/Resolved with Sequelae]
  - Paraesthesia [Unknown]
  - Pallor [Recovered/Resolved with Sequelae]
  - Feeling abnormal [Recovered/Resolved with Sequelae]
  - Chest discomfort [Unknown]
  - Paraesthesia oral [Unknown]
  - Blood pressure increased [Unknown]
  - Flushing [Unknown]
  - Poor peripheral circulation [Recovered/Resolved with Sequelae]
  - Dizziness [Unknown]

NARRATIVE: CASE EVENT DATE: 20201231
